FAERS Safety Report 7457225-0 (Version None)
Quarter: 2011Q2

REPORT INFORMATION
  Report Type: 
  Country: None (occurrence: None)
  Receive Date: 20110504
  Receipt Date: 20110428
  Transmission Date: 20111010
  Serious: No
  Sender: FDA-Public Use
  Company Number: US-PFIZER INC-2011092164

PATIENT

DRUGS (1)
  1. NEURONTIN [Suspect]
     Dosage: 300 MG ONCE A DAY AT BEDTIME

REACTIONS (1)
  - SEDATION [None]
